FAERS Safety Report 8204195-3 (Version None)
Quarter: 2012Q1

REPORT INFORMATION
  Report Type: 
  Country: None (occurrence: None)
  Receive Date: 20120313
  Receipt Date: 20120305
  Transmission Date: 20120608
  Serious: Yes (Hospitalization, Other)
  Sender: FDA-Public Use
  Company Number: JP-ASTELLAS-2011US007151

PATIENT
  Sex: Female
  Weight: 47 kg

DRUGS (7)
  1. GEMCITABINE [Suspect]
     Dosage: 1000 MG/M2, WEEKLY
     Route: 041
     Dates: start: 20111102, end: 20111109
  2. GEMCITABINE [Suspect]
     Dosage: 1000 MG/M2, UID/QD
     Route: 041
     Dates: start: 20111119, end: 20111119
  3. CYTOTEC [Concomitant]
     Indication: PRODUCT USED FOR UNKNOWN INDICATION
     Dosage: 200 UG, UNKNOWN/D
     Route: 048
  4. ERLOTINIB HYDROCHLORIDE [Suspect]
     Indication: PANCREATIC CARCINOMA
     Dosage: 100 MG, UID/QD
     Route: 048
     Dates: start: 20111014, end: 20111027
  5. ERLOTINIB HYDROCHLORIDE [Suspect]
     Dosage: 100 MG, UID/QD
     Route: 048
     Dates: start: 20111031, end: 20111130
  6. GEMCITABINE [Suspect]
     Indication: PANCREATIC CARCINOMA
     Dosage: 1000 MG/M2, WEEKLY
     Route: 041
     Dates: start: 20111014, end: 20111021
  7. LOXONIN [Concomitant]
     Indication: PRODUCT USED FOR UNKNOWN INDICATION
     Dosage: 60 MG, UNKNOWN/D
     Route: 048

REACTIONS (11)
  - INSOMNIA [None]
  - GASTRITIS EROSIVE [None]
  - NEOPLASM PROGRESSION [None]
  - PANCREATIC CARCINOMA [None]
  - MEIBOMIAN GLAND DYSFUNCTION [None]
  - JAUNDICE CHOLESTATIC [None]
  - CONSTIPATION [None]
  - DISEASE PROGRESSION [None]
  - DERMATITIS ACNEIFORM [None]
  - NEUTROPENIA [None]
  - STOMATITIS [None]
